FAERS Safety Report 10043000 (Version 1)
Quarter: 2014Q1

REPORT INFORMATION
  Report Type: Not Available
  Country: PT (occurrence: PT)
  Receive Date: 20140328
  Receipt Date: 20140328
  Transmission Date: 20141002
  Serious: Yes (Other)
  Sender: FDA-Public Use
  Company Number: PT-BEH-2014041289

PATIENT
  Age: 63 Year
  Sex: Female
  Weight: 80 kg

DRUGS (10)
  1. PRIVIGEN [Suspect]
     Indication: MYASTHENIA GRAVIS
     Dosage: 30 G TOTAL
     Route: 042
     Dates: start: 20140224, end: 20140226
  2. PYRIDOSTIGMINE BROMIDE [Concomitant]
     Indication: MYASTHENIA GRAVIS
     Dosage: SINCE 1997
     Route: 048
  3. PREDNISOLONE [Concomitant]
     Indication: MYASTHENIA GRAVIS
     Dosage: SINCE 1997
     Route: 048
  4. OMEPRAZOL [Concomitant]
     Indication: PROPHYLAXIS
     Dosage: SINCE 1997
     Route: 048
  5. AZETHIOPRINE [Concomitant]
     Indication: MYASTHENIA GRAVIS
     Dosage: SINCE 2000
     Route: 048
  6. MIRTAZAPINE [Concomitant]
     Indication: DEPRESSION
     Dosage: SINCE 2010
     Route: 048
  7. SERTRALINE [Concomitant]
     Indication: DEPRESSION
     Dosage: SINCE 2010
     Route: 048
  8. CALCIUM LACTATE GLUCONATE [Concomitant]
     Indication: OSTEOPOROSIS
     Dosage: SINCE 2013
     Route: 048
  9. CALCIUM CARBONATE [Concomitant]
     Indication: OSTEOPOROSIS
     Dosage: SINCE 2013
     Route: 048
  10. SODIUM IBANDRONATE [Concomitant]
     Indication: OSTEOPOROSIS
     Dosage: SINCE 2013
     Route: 048

REACTIONS (4)
  - Dyspnoea [Recovered/Resolved]
  - Headache [Recovered/Resolved]
  - Erythema [Recovered/Resolved]
  - Localised oedema [Recovered/Resolved]
